FAERS Safety Report 6922773-6 (Version None)
Quarter: 2010Q3

REPORT INFORMATION
  Report Type: 
  Country: None (occurrence: None)
  Receive Date: 20100813
  Receipt Date: 20100806
  Transmission Date: 20110219
  Serious: Yes (Other)
  Sender: FDA-Public Use
  Company Number: CN-ASTRAZENECA-2010SE37075

PATIENT
  Age: 28 Year
  Sex: Female

DRUGS (2)
  1. PROPOFOL [Suspect]
     Indication: ANALGESIC THERAPY
     Route: 042
  2. BUTORPHANOL TARTRATE [Concomitant]
     Indication: ANALGESIC THERAPY
     Route: 042

REACTIONS (3)
  - ASTHENIA [None]
  - DIZZINESS [None]
  - TYPE I HYPERSENSITIVITY [None]
